FAERS Safety Report 8506316-1 (Version None)
Quarter: 2012Q3

REPORT INFORMATION
  Report Type: 
  Country: None (occurrence: None)
  Receive Date: 20120712
  Receipt Date: 20120703
  Transmission Date: 20120928
  Serious: Yes (Hospitalization)
  Sender: FDA-Public Use
  Company Number: FR-JNJFOC-20120701573

PATIENT
  Sex: Male

DRUGS (4)
  1. PROCORALAN [Concomitant]
     Indication: GASTROOESOPHAGEAL REFLUX DISEASE
     Route: 048
  2. PANTOPRAZOLE SODIUM [Concomitant]
     Indication: GASTROOESOPHAGEAL REFLUX DISEASE
     Route: 048
  3. AKINETON [Suspect]
     Indication: PARKINSONISM
     Route: 048
  4. HALDOL [Suspect]
     Indication: PSYCHOTIC DISORDER
     Route: 048

REACTIONS (4)
  - PAIN [None]
  - ABDOMINAL DISTENSION [None]
  - VOLVULUS [None]
  - HAEMOGLOBIN DECREASED [None]
